FAERS Safety Report 25386156 (Version 1)
Quarter: 2025Q2

REPORT INFORMATION
  Report Type: Spontaneous
  Country: US (occurrence: None)
  Receive Date: 20250531
  Receipt Date: 20250531
  Transmission Date: 20250716
  Serious: No
  Sender: FDA-CTU
  Company Number: None

PATIENT

DRUGS (1)
  1. ZYRTEC [Suspect]
     Active Substance: CETIRIZINE HYDROCHLORIDE
     Indication: Multiple allergies
     Dosage: OTHER QUANTITY : 1 TABLET(S);?FREQUENCY : DAILY;?

REACTIONS (5)
  - Withdrawal syndrome [None]
  - Pruritus [None]
  - Nausea [None]
  - Abdominal distension [None]
  - Diarrhoea [None]

NARRATIVE: CASE EVENT DATE: 20250531
